FAERS Safety Report 16022967 (Version 1)
Quarter: 2019Q1

REPORT INFORMATION
  Report Type: Spontaneous
  Country: US (occurrence: US)
  Receive Date: 20190301
  Receipt Date: 20190301
  Transmission Date: 20190418
  Serious: No
  Sender: FDA-Public Use
  Company Number: US-BRECKENRIDGE PHARMACEUTICAL, INC.-2063389

PATIENT
  Age: 82 Year
  Sex: Male
  Weight: 98.18 kg

DRUGS (1)
  1. EPLERENONE 25MG TABLETS [Suspect]
     Active Substance: EPLERENONE
     Route: 048
     Dates: start: 20190212

REACTIONS (2)
  - Vomiting [Recovered/Resolved]
  - Diarrhoea [Recovered/Resolved]
